FAERS Safety Report 6004853-5 (Version None)
Quarter: 2008Q4

REPORT INFORMATION
  Report Type: 
  Country: None (occurrence: None)
  Receive Date: 20081216
  Receipt Date: 20081211
  Transmission Date: 20090506
  Serious: Yes (Life-Threatening, Hospitalization)
  Sender: FDA-Public Use
  Company Number: JP-ABBOTT-08P-087-0492470-00

PATIENT
  Age: 59 Year
  Sex: Male
  Weight: 63 kg

DRUGS (9)
  1. CLARITH TABLETS [Suspect]
     Indication: MYCOBACTERIUM AVIUM COMPLEX INFECTION
     Route: 048
     Dates: start: 20071122, end: 20080112
  2. CLARITH TABLETS [Suspect]
     Route: 048
     Dates: start: 20040624, end: 20060601
  3. CLARITH TABLETS [Suspect]
     Route: 048
     Dates: start: 20040513, end: 20040610
  4. RIFAMPICIN [Suspect]
     Indication: MYCOBACTERIUM AVIUM COMPLEX INFECTION
     Route: 048
     Dates: start: 20040513, end: 20040610
  5. RIFAMPICIN [Suspect]
     Route: 048
     Dates: start: 20040723, end: 20040723
  6. RIFAMPICIN [Suspect]
     Route: 048
     Dates: start: 20071227, end: 20080112
  7. ETHAMBUTOL HYDROCHLORIDE [Suspect]
     Indication: MYCOBACTERIUM AVIUM COMPLEX INFECTION
     Route: 048
     Dates: start: 20071206
  8. ETHAMBUTOL HYDROCHLORIDE [Suspect]
     Dates: start: 20040708, end: 20040708
  9. ETHAMBUTOL HYDROCHLORIDE [Suspect]
     Route: 048
     Dates: start: 20040513, end: 20040610

REACTIONS (15)
  - ANOREXIA [None]
  - EPIGASTRIC DISCOMFORT [None]
  - HAEMOPTYSIS [None]
  - HEADACHE [None]
  - MALAISE [None]
  - MYCOBACTERIAL INFECTION [None]
  - NAUSEA [None]
  - NIGHT SWEATS [None]
  - PRODUCTIVE COUGH [None]
  - PYREXIA [None]
  - RASH [None]
  - RENAL DISORDER [None]
  - THROMBOTIC THROMBOCYTOPENIC PURPURA [None]
  - TONGUE DISORDER [None]
  - VOMITING [None]
